FAERS Safety Report 7430765-6 (Version None)
Quarter: 2011Q2

REPORT INFORMATION
  Report Type: 
  Country: None (occurrence: None)
  Receive Date: 20110421
  Receipt Date: 20110415
  Transmission Date: 20111010
  Serious: Yes (Hospitalization)
  Sender: FDA-Public Use
  Company Number: US-GILEAD-2011-0038294

PATIENT
  Sex: Male

DRUGS (15)
  1. MINERAL SUPPLEMENT [Concomitant]
  2. ASCORBIC ACID [Concomitant]
  3. VITAMIN E [Concomitant]
  4. ASPIRIN [Concomitant]
  5. LASIX [Concomitant]
  6. ALBUTEROL [Concomitant]
  7. VITAMIN B-12 [Concomitant]
  8. LETAIRIS [Suspect]
     Indication: PULMONARY HYPERTENSION
     Route: 048
     Dates: start: 20101103
  9. VITAMIN D [Concomitant]
  10. COZAAR [Concomitant]
  11. NIASPAN [Concomitant]
  12. CARDIO CLEAR [Concomitant]
  13. NORVASC [Concomitant]
  14. LABETALOL [Concomitant]
  15. COD LIVER OIL [Concomitant]

REACTIONS (1)
  - CARDIAC FAILURE CONGESTIVE [None]
